FAERS Safety Report 24577984 (Version 1)
Quarter: 2024Q4

REPORT INFORMATION
  Report Type: Spontaneous
  Country: US (occurrence: US)
  Receive Date: 20241104
  Receipt Date: 20241104
  Transmission Date: 20250115
  Serious: No
  Sender: JOHNSON AND JOHNSON
  Company Number: US-JNJFOC-20241084933

PATIENT
  Age: 4 Decade
  Sex: Female

DRUGS (1)
  1. SPRAVATO [Suspect]
     Active Substance: ESKETAMINE
     Indication: Product used for unknown indication
     Dates: start: 20241025, end: 20241025

REACTIONS (4)
  - Eye pain [Unknown]
  - Dissociation [Unknown]
  - Illness [Unknown]
  - Drug delivery system malfunction [Unknown]
